FAERS Safety Report 5825498-3 (Version None)
Quarter: 2008Q3

REPORT INFORMATION
  Report Type: 
  Country: None (occurrence: None)
  Receive Date: 20080723
  Receipt Date: 20080715
  Transmission Date: 20090109
  Serious: Yes (Hospitalization)
  Sender: FDA-Public Use
  Company Number: 163-21880-08060791

PATIENT
  Age: 53 Year
  Sex: Male

DRUGS (7)
  1. REVLIMID [Suspect]
     Indication: CHRONIC LYMPHOCYTIC LEUKAEMIA
     Dosage: 5 MG, 1 IN 1 D, ORAL; 10 MG, 1 IN 1D, ORAL
     Route: 048
     Dates: start: 20080425, end: 20080427
  2. REVLIMID [Suspect]
     Indication: CHRONIC LYMPHOCYTIC LEUKAEMIA
     Dosage: 5 MG, 1 IN 1 D, ORAL; 10 MG, 1 IN 1D, ORAL
     Route: 048
     Dates: start: 20080429, end: 20080517
  3. PREDNISONE [Concomitant]
  4. ALLOPURINOL [Concomitant]
  5. RANITIDINE HCL [Concomitant]
  6. OMEPRAZOLE [Concomitant]
  7. AMBIEN [Concomitant]

REACTIONS (7)
  - ARTHRALGIA [None]
  - BACK PAIN [None]
  - HYPOTENSION [None]
  - MYALGIA [None]
  - PAIN [None]
  - PYREXIA [None]
  - TUMOUR LYSIS SYNDROME [None]
